FAERS Safety Report 5243576-7 (Version None)
Quarter: 2007Q1

REPORT INFORMATION
  Report Type: 
  Country: None (occurrence: None)
  Receive Date: 20070220
  Receipt Date: 20070220
  Transmission Date: 20070707
  Serious: Yes (Hospitalization)
  Sender: FDA-Public Use
  Company Number: None

PATIENT
  Sex: Male
  Weight: 63.3 kg

DRUGS (2)
  1. TAXOL [Suspect]
     Indication: NASAL SINUS CANCER
     Dosage: 100MG/M2  IV Q W
     Route: 042
     Dates: start: 20070123
  2. CARBOPLATIN [Suspect]
     Dosage: AUC 6  IV  Q3WKS
     Route: 042
     Dates: start: 20070116

REACTIONS (4)
  - CONDITION AGGRAVATED [None]
  - DYSPNOEA [None]
  - INTERSTITIAL LUNG DISEASE [None]
  - TUBERCULOSIS [None]
